FAERS Safety Report 14654894 (Version 1)
Quarter: 2018Q1

REPORT INFORMATION
  Report Type: Spontaneous
  Country: US (occurrence: US)
  Receive Date: 20180319
  Receipt Date: 20180319
  Transmission Date: 20180509
  Serious: No
  Sender: FDA-Public Use
  Company Number: US-GLAXOSMITHKLINE-US2018GSK045335

PATIENT
  Sex: Female

DRUGS (1)
  1. REQUIP XL [Suspect]
     Active Substance: ROPINIROLE HYDROCHLORIDE
     Indication: PARKINSON^S DISEASE
     Dosage: 12 MG, UNK
     Dates: start: 2011

REACTIONS (4)
  - Gait disturbance [Unknown]
  - Tremor [Unknown]
  - Aphasia [Unknown]
  - Drug dose omission [Unknown]
